FAERS Safety Report 25778003 (Version 1)
Quarter: 2025Q3

REPORT INFORMATION
  Report Type: Report from Study
  Country: GB (occurrence: GB)
  Receive Date: 20250909
  Receipt Date: 20250909
  Transmission Date: 20251021
  Serious: Yes (Death)
  Sender: ROCHE
  Company Number: GB-ROCHE-10000382207

PATIENT
  Age: 95 Year
  Sex: Female
  Weight: 67.5 kg

DRUGS (8)
  1. VABYSMO [Suspect]
     Active Substance: FARICIMAB-SVOA
     Indication: Neovascular age-related macular degeneration
     Dosage: ON 18-MAR-2025, SHE RECEIVED MOST RECENT DOSE OF FARICIMAB PRIOR TO TRAUMATIC SUBDURAL HEMATOMA.
     Route: 050
  2. BUMETANIDE [Concomitant]
     Active Substance: BUMETANIDE
     Indication: Cardiac failure congestive
     Route: 048
     Dates: start: 20240920
  3. BECLOMETHASONE\FORMOTEROL [Concomitant]
     Active Substance: BECLOMETHASONE\FORMOTEROL
     Indication: Asthma
     Dosage: STRENGTH: 100/6?DOSE: 2 PUFF
     Route: 055
     Dates: start: 20240415
  4. COCODAMOL [Concomitant]
     Active Substance: ACETAMINOPHEN\CODEINE PHOSPHATE
     Indication: Osteoarthritis
     Dosage: 30/500
     Route: 048
     Dates: start: 20240104
  5. CITALOPRAM [Concomitant]
     Active Substance: CITALOPRAM
     Indication: Depressed mood
     Route: 048
     Dates: start: 20220412
  6. APIXABAN [Concomitant]
     Active Substance: APIXABAN
     Indication: Deep vein thrombosis
     Route: 048
     Dates: start: 20170119
  7. LATANOPROST [Concomitant]
     Active Substance: LATANOPROST
     Indication: Glaucoma
     Dosage: 50 MCG/ 1 ML
     Route: 061
     Dates: start: 20220223
  8. DORZOLAMIDE [Concomitant]
     Active Substance: DORZOLAMIDE
     Indication: Glaucoma
     Dosage: 20 MG/ML
     Route: 061
     Dates: start: 20150519

REACTIONS (1)
  - Subdural haematoma [Fatal]

NARRATIVE: CASE EVENT DATE: 20250624
